FAERS Safety Report 20354932 (Version 1)
Quarter: 2022Q1

REPORT INFORMATION
  Report Type: Spontaneous
  Country: US (occurrence: US)
  Receive Date: 20220120
  Receipt Date: 20220120
  Transmission Date: 20220423
  Serious: No
  Sender: FDA-Public Use
  Company Number: ENDG21-04711

PATIENT
  Age: 55 Year
  Sex: Male

DRUGS (1)
  1. ENDOCET [Suspect]
     Active Substance: ACETAMINOPHEN\OXYCODONE HYDROCHLORIDE
     Indication: Spinal osteoarthritis
     Dosage: 1 DF, EVERY 4 TO 6 HOURS AS NEEDED

REACTIONS (2)
  - Headache [Unknown]
  - Product physical issue [Unknown]

NARRATIVE: CASE EVENT DATE: 20210719
